FAERS Safety Report 22198333 (Version 2)
Quarter: 2023Q2

REPORT INFORMATION
  Report Type: Report from Study
  Country: TR (occurrence: None)
  Receive Date: 20230411
  Receipt Date: 20230424
  Transmission Date: 20230722
  Serious: Yes (Hospitalization)
  Sender: FDA-Public Use
  Company Number: TR-ROCHE-3199989

PATIENT
  Age: 68 Year
  Sex: Female
  Weight: 93 kg

DRUGS (19)
  1. MOSUNETUZUMAB [Suspect]
     Active Substance: MOSUNETUZUMAB
     Indication: Non-Hodgkin^s lymphoma metastatic
     Dosage: DATE OF MOST RECENT DOSE (1 MG) OF STUDY DRUG PRIOR TO SAE: 11/OCT/2022?END DATE OF MOST RECENT DOSE
     Route: 042
     Dates: start: 20221011
  2. LEVOTHYROXINE SODIUM [Concomitant]
     Active Substance: LEVOTHYROXINE SODIUM
     Indication: Goitre
     Route: 048
  3. METOPROLOL [Concomitant]
     Active Substance: METOPROLOL
     Indication: Hypertension
     Route: 048
  4. BARACLUDE [Concomitant]
     Active Substance: ENTECAVIR
     Indication: Hepatitis B
     Route: 048
  5. BARACLUDE [Concomitant]
     Active Substance: ENTECAVIR
     Route: 048
  6. BACTRIM [Concomitant]
     Active Substance: SULFAMETHOXAZOLE\TRIMETHOPRIM
     Indication: Infection
     Route: 048
  7. VALTREX [Concomitant]
     Active Substance: VALACYCLOVIR HYDROCHLORIDE
     Indication: Infection
     Route: 048
  8. METOPROLOL [Concomitant]
     Active Substance: METOPROLOL
     Indication: Hypertension
     Route: 048
  9. LERCANIDIPINE HYDROCHLORIDE [Concomitant]
     Active Substance: LERCANIDIPINE HYDROCHLORIDE
     Indication: Hypertension
     Route: 048
     Dates: start: 20221012
  10. PAROL [Concomitant]
     Active Substance: ACETAMINOPHEN
     Route: 048
     Dates: start: 20221011, end: 20221011
  11. PHENIRAMINE [Concomitant]
     Active Substance: PHENIRAMINE
     Route: 048
     Dates: start: 20221011, end: 20221011
  12. PREDNOL L [Concomitant]
     Route: 048
     Dates: start: 20221011, end: 20221011
  13. PANTOPRAZOLE SODIUM [Concomitant]
     Active Substance: PANTOPRAZOLE SODIUM
     Route: 048
  14. ACYCLOVIR [Concomitant]
     Active Substance: ACYCLOVIR
     Route: 048
     Dates: start: 20221011, end: 20221012
  15. LANSOPRAZOLE [Concomitant]
     Active Substance: LANSOPRAZOLE
     Route: 048
     Dates: start: 20221011, end: 20221011
  16. GRANITRON [Concomitant]
     Indication: Nausea
     Route: 048
     Dates: start: 20221011, end: 20221012
  17. PROPRANOLOL HYDROCHLORIDE [Concomitant]
     Active Substance: PROPRANOLOL HYDROCHLORIDE
     Indication: Hypertension
     Route: 048
     Dates: start: 20221011, end: 20221012
  18. GERALGINE-K [Concomitant]
     Indication: Abdominal pain
     Route: 048
     Dates: start: 20221012
  19. ENOX (TURKEY) [Concomitant]
     Route: 030
     Dates: end: 20230120

REACTIONS (1)
  - Infusion related reaction [Recovered/Resolved]

NARRATIVE: CASE EVENT DATE: 20221011
